FAERS Safety Report 9278619 (Version 2)
Quarter: 2013Q4

REPORT INFORMATION
  Report Type: Spontaneous
  Country: US (occurrence: US)
  Receive Date: 20130508
  Receipt Date: 20131129
  Transmission Date: 20140711
  Serious: No
  Sender: FDA-Public Use
  Company Number: US-PFIZER INC-2013140407

PATIENT
  Age: 52 Year
  Sex: Female

DRUGS (2)
  1. XALKORI [Suspect]
     Indication: LUNG NEOPLASM MALIGNANT
     Dosage: 250 MG, 2X/DAY
     Route: 048
     Dates: start: 20130410
  2. XALKORI [Suspect]
     Dosage: UNK
     Dates: start: 20130525

REACTIONS (3)
  - Fluid retention [Recovering/Resolving]
  - Constipation [Unknown]
  - Nausea [Unknown]
